FAERS Safety Report 18165911 (Version 1)
Quarter: 2020Q3

REPORT INFORMATION
  Report Type: Spontaneous
  Country: US (occurrence: US)
  Receive Date: 20200818
  Receipt Date: 20200818
  Transmission Date: 20201103
  Serious: No
  Sender: FDA-Public Use
  Company Number: US-TEVA-2020-US-1814438

PATIENT
  Sex: Female

DRUGS (3)
  1. AFINITOR [Concomitant]
     Active Substance: EVEROLIMUS
     Indication: FATIGUE
     Route: 065
  2. LENVIMA EDI EISAI INC [Concomitant]
     Indication: RENAL CANCER
     Dosage: 14 MILLIGRAM DAILY; 10MG/4MG
     Route: 048
  3. TRAZODONE [Suspect]
     Active Substance: TRAZODONE HYDROCHLORIDE
     Indication: HEART RATE INCREASED
     Route: 065

REACTIONS (1)
  - Drug ineffective [Unknown]
